FAERS Safety Report 4952743-9 (Version None)
Quarter: 2006Q1

REPORT INFORMATION
  Report Type: 
  Country: None (occurrence: None)
  Receive Date: 20060320
  Receipt Date: 20060307
  Transmission Date: 20060701
  Serious: Yes (Hospitalization, Other)
  Sender: FDA-Public Use
  Company Number: 215791

PATIENT
  Age: 53 Year
  Sex: Female

DRUGS (14)
  1. RITUXIMAB (RITUXIMAB) CONC FOR SOLUTION FOR INFUSION [Suspect]
     Indication: RHEUMATOID ARTHRITIS
     Dosage: 1000 MG, DAYS 1 + 15, INTRAVENOUS
     Route: 042
     Dates: start: 20040622, end: 20040706
  2. METHYLPREDNISOLONE [Suspect]
     Indication: RHEUMATOID ARTHRITIS
     Dosage: 100 MG, DAYS 1 + 15, INTRAVENOUS
     Route: 042
  3. PREDNISONE TAB [Suspect]
     Indication: RHEUMATOID ARTHRITIS
     Dosage: ORAL
     Route: 048
  4. FOLIC ACID [Concomitant]
  5. INSULIN (INSULIN) [Concomitant]
  6. MONOPRIL [Concomitant]
  7. ROSIGLITAZONE [Concomitant]
  8. METHOTREXATE [Concomitant]
  9. HYDROXYCHLOROQUINE (HYDROXYCHLOROQUINE SULFATE) [Concomitant]
  10. PREDNISONE TAB [Concomitant]
  11. IBUPROFEN [Concomitant]
  12. CALCIUM (CALCIUM NOS) [Concomitant]
  13. MULTIVITAMIN  (MULTIVITAMINS NOS) [Concomitant]
  14. VITAMIN E [Concomitant]

REACTIONS (1)
  - BREAST CANCER FEMALE [None]
